FAERS Safety Report 12834569 (Version 1)
Quarter: 2016Q4

REPORT INFORMATION
  Report Type: Spontaneous
  Country: GB (occurrence: GB)
  Receive Date: 20161010
  Receipt Date: 20161010
  Transmission Date: 20170207
  Serious: Yes (Life-Threatening, Other)
  Sender: FDA-Public Use
  Company Number: GB-PFIZER INC-2016466791

PATIENT
  Age: 39 Year
  Sex: Female
  Weight: 64 kg

DRUGS (2)
  1. PREGABALIN. [Suspect]
     Active Substance: PREGABALIN
     Indication: ANXIETY
     Dosage: 300 MG, UNK
     Route: 048
     Dates: start: 201411
  2. ESCITALOPRAM [Concomitant]
     Active Substance: ESCITALOPRAM OXALATE
     Dosage: UNK

REACTIONS (7)
  - Amnesia [Recovering/Resolving]
  - Suicidal ideation [Recovered/Resolved with Sequelae]
  - Hypersensitivity [Recovered/Resolved]
  - Fatigue [Recovering/Resolving]
  - Withdrawal syndrome [Unknown]
  - Anger [Recovering/Resolving]
  - Depression [Not Recovered/Not Resolved]
